FAERS Safety Report 22530428 (Version 1)
Quarter: 2023Q2

REPORT INFORMATION
  Report Type: Spontaneous
  Country: US (occurrence: US)
  Receive Date: 20230607
  Receipt Date: 20230607
  Transmission Date: 20230722
  Serious: Yes (Hospitalization, Other)
  Sender: FDA-Public Use
  Company Number: US-SA-SAC20230607000164

PATIENT
  Sex: Female

DRUGS (1)
  1. DUPIXENT [Suspect]
     Active Substance: DUPILUMAB
     Indication: Asthma
     Dosage: 300 MG, QOW
     Route: 058

REACTIONS (10)
  - Neuropathy peripheral [Unknown]
  - Cataract [Unknown]
  - Dehydration [Unknown]
  - Mouth ulceration [Unknown]
  - Swelling face [Unknown]
  - Eczema [Unknown]
  - Skin ulcer [Unknown]
  - Dry eye [Unknown]
  - Rash [Unknown]
  - Arthralgia [Unknown]
